FAERS Safety Report 14811023 (Version 1)
Quarter: 2018Q2

REPORT INFORMATION
  Report Type: Report from Study
  Country: US (occurrence: US)
  Receive Date: 20180425
  Receipt Date: 20180425
  Transmission Date: 20180711
  Serious: No
  Sender: FDA-Public Use
  Company Number: US-AMGEN-USASL2018036244

PATIENT
  Sex: Female

DRUGS (1)
  1. REPATHA [Suspect]
     Active Substance: EVOLOCUMAB
     Indication: VASCULAR GRAFT
     Dosage: 140 MG, Q2WK
     Route: 065
     Dates: start: 2016

REACTIONS (2)
  - Visual impairment [Unknown]
  - Hypoacusis [Unknown]
